FAERS Safety Report 10952227 (Version 1)
Quarter: 2015Q1

REPORT INFORMATION
  Report Type: Spontaneous
  Country: US (occurrence: None)
  Receive Date: 20150324
  Receipt Date: 20150324
  Transmission Date: 20150721
  Serious: Yes (Other)
  Sender: FDA-Public Use
  Company Number: None

PATIENT
  Age: 84 Year
  Sex: Male

DRUGS (1)
  1. EXELON [Suspect]
     Active Substance: RIVASTIGMINE TARTRATE
     Indication: DEMENTIA ALZHEIMER^S TYPE
     Dosage: APPLIED AS MEDICATED PATCH TO SKIN

REACTIONS (7)
  - Dermatitis [None]
  - Weight decreased [None]
  - Skin disorder [None]
  - Decreased appetite [None]
  - Seborrhoeic keratosis [None]
  - Seborrhoeic dermatitis [None]
  - Actinic keratosis [None]

NARRATIVE: CASE EVENT DATE: 20150323
